FAERS Safety Report 5363466-9 (Version None)
Quarter: 2007Q2

REPORT INFORMATION
  Report Type: 
  Country: None (occurrence: None)
  Receive Date: 20070618
  Receipt Date: 20070605
  Transmission Date: 20071010
  Serious: Yes (Death, Hospitalization)
  Sender: FDA-Public Use
  Company Number: 2007AL002267

PATIENT
  Sex: Female

DRUGS (7)
  1. DIAZEPAM [Suspect]
     Indication: PAIN
     Dosage: 15 MG; QD; PO
     Route: 048
  2. OXYCODONE HCL [Suspect]
     Indication: PAIN
  3. LORAZEPAM [Suspect]
     Indication: PAIN
     Dosage: 6 MG; QD;PO
     Route: 048
  4. CLONIDINE [Concomitant]
  5. CARISOPRODOL [Concomitant]
  6. METHADONE HCL [Concomitant]
  7. ETHCHLORVYNOL [Concomitant]

REACTIONS (32)
  - ABDOMINAL PAIN [None]
  - ABDOMINAL PAIN UPPER [None]
  - ACCIDENT [None]
  - AMNESIA [None]
  - ARTHRALGIA [None]
  - CAUDA EQUINA SYNDROME [None]
  - CHEST PAIN [None]
  - COMPLEX REGIONAL PAIN SYNDROME [None]
  - CONSTIPATION [None]
  - DRUG ABUSER [None]
  - DRUG DEPENDENCE [None]
  - DRUG EXPOSURE DURING PREGNANCY [None]
  - DRUG PRESCRIBING ERROR [None]
  - DRUG TOXICITY [None]
  - DRUG WITHDRAWAL SYNDROME [None]
  - FACTITIOUS DISORDER [None]
  - GALLBLADDER PERFORATION [None]
  - HEART DISEASE CONGENITAL [None]
  - HEPATITIS TOXIC [None]
  - HYPERVENTILATION [None]
  - IATROGENIC INJURY [None]
  - INCORRECT DOSE ADMINISTERED [None]
  - LETHARGY [None]
  - LOSS OF CONSCIOUSNESS [None]
  - LYMPHADENOPATHY [None]
  - MOANING [None]
  - PERITONITIS [None]
  - PROCEDURAL PAIN [None]
  - SUBSTANCE ABUSE [None]
  - TOOTHACHE [None]
  - URINARY RETENTION [None]
  - VOMITING [None]
